FAERS Safety Report 4473031-3 (Version None)
Quarter: 2004Q4

REPORT INFORMATION
  Report Type: 
  Country: None (occurrence: None)
  Receive Date: 20041008
  Receipt Date: 20041008
  Transmission Date: 20050328
  Serious: Yes (Hospitalization)
  Sender: FDA-Public Use
  Company Number: None

PATIENT
  Age: 72 Year
  Sex: Female
  Weight: 67.1324 kg

DRUGS (7)
  1. GEMZAR [Suspect]
     Indication: LUNG CARCINOMA CELL TYPE UNSPECIFIED STAGE III
     Dosage: 1100 MG IV
     Route: 042
     Dates: start: 20040824
  2. GEMZAR [Suspect]
     Indication: LUNG CARCINOMA CELL TYPE UNSPECIFIED STAGE III
     Dosage: 900 MG IV
     Route: 042
     Dates: start: 20040907
  3. GEMZAR [Suspect]
     Indication: LUNG CARCINOMA CELL TYPE UNSPECIFIED STAGE III
     Dosage: 900 MG IV
     Route: 042
     Dates: start: 20040920
  4. CARBOPLATIN [Suspect]
     Dosage: 75 MG IV
     Route: 042
     Dates: start: 20040907
  5. CARBOPLATIN [Suspect]
     Dosage: 75 MG IV
     Route: 042
     Dates: start: 20040920
  6. XRT [Suspect]
     Indication: LUNG CARCINOMA CELL TYPE UNSPECIFIED STAGE III
     Dosage: 180 CGY DAILY
     Dates: start: 20040824
  7. CARBOPLATIN [Suspect]
     Dosage: 125 MG IV
     Route: 042
     Dates: start: 20040824

REACTIONS (16)
  - ANOREXIA [None]
  - ASTHENIA [None]
  - BLOOD CREATININE INCREASED [None]
  - DEHYDRATION [None]
  - DIARRHOEA [None]
  - DIZZINESS [None]
  - DRUG TOXICITY [None]
  - DYSPHAGIA [None]
  - FATIGUE [None]
  - HYPOTENSION [None]
  - NAUSEA [None]
  - NEPHROPATHY TOXIC [None]
  - NEUTROPHIL COUNT DECREASED [None]
  - OESOPHAGITIS [None]
  - TACHYCARDIA [None]
  - WHITE BLOOD CELL COUNT DECREASED [None]
